FAERS Safety Report 16342950 (Version 5)
Quarter: 2020Q3

REPORT INFORMATION
  Report Type: Spontaneous
  Country: ES (occurrence: ES)
  Receive Date: 20190522
  Receipt Date: 20200515
  Transmission Date: 20201104
  Serious: Yes (Hospitalization, Other)
  Sender: FDA-Public Use
  Company Number: ES-CELGENEUS-ESP-20190500486

PATIENT
  Age: 50 Year
  Sex: Male
  Weight: 76.9 kg

DRUGS (40)
  1. ABRAXANE [Suspect]
     Active Substance: PACLITAXEL
     Route: 041
     Dates: start: 20190227, end: 20190227
  2. ONDANSETRON [Concomitant]
     Active Substance: ONDANSETRON
     Indication: PREMEDICATION
     Dosage: 24 MILLIGRAM
     Route: 041
     Dates: start: 20190123, end: 20190520
  3. ONDANSETRON [Concomitant]
     Active Substance: ONDANSETRON
     Dosage: 24 MILLIGRAM
     Route: 048
     Dates: start: 20190607
  4. ABRAXANE [Suspect]
     Active Substance: PACLITAXEL
     Route: 041
     Dates: start: 20190319, end: 20190319
  5. ABRAXANE [Suspect]
     Active Substance: PACLITAXEL
     Route: 041
     Dates: start: 20190520, end: 20190520
  6. OLECLUMAB. [Suspect]
     Active Substance: OLECLUMAB
     Indication: PANCREATIC CARCINOMA METASTATIC
     Route: 041
     Dates: start: 20190123, end: 20190123
  7. OLECLUMAB. [Suspect]
     Active Substance: OLECLUMAB
     Route: 041
     Dates: start: 20190213, end: 20190213
  8. GEMCITABINE. [Suspect]
     Active Substance: GEMCITABINE
     Route: 041
     Dates: start: 20190319, end: 20190319
  9. GEMCITABINE. [Suspect]
     Active Substance: GEMCITABINE
     Route: 041
     Dates: start: 20190410, end: 20190410
  10. URBASON [Concomitant]
     Active Substance: METHYLPREDNISOLONE
     Indication: ASTHENIA
     Dosage: 23 MILLIGRAM
     Route: 002
     Dates: start: 20190416
  11. ABRAXANE [Suspect]
     Active Substance: PACLITAXEL
     Route: 041
     Dates: start: 20190410, end: 20190410
  12. GEMCITABINE. [Suspect]
     Active Substance: GEMCITABINE
     Route: 041
     Dates: start: 20190227, end: 20190227
  13. KREON [Concomitant]
     Active Substance: PANCRELIPASE
     Indication: PANCREATIC CARCINOMA METASTATIC
     Dosage: 12500 IU (INTERNATIONAL UNIT)
     Route: 048
     Dates: start: 2018
  14. KREON [Concomitant]
     Active Substance: PANCRELIPASE
     Indication: PROPHYLAXIS
  15. PARACETAMOL [Concomitant]
     Active Substance: ACETAMINOPHEN
     Route: 042
     Dates: start: 20190612, end: 20190614
  16. ABRAXANE [Suspect]
     Active Substance: PACLITAXEL
     Route: 041
     Dates: start: 20190213, end: 20190213
  17. OLECLUMAB. [Suspect]
     Active Substance: OLECLUMAB
     Route: 041
     Dates: start: 20190227, end: 20190227
  18. GEMCITABINE. [Suspect]
     Active Substance: GEMCITABINE
     Route: 041
     Dates: start: 20190416, end: 20190416
  19. GEMCITABINE. [Suspect]
     Active Substance: GEMCITABINE
     Route: 041
     Dates: start: 20190513, end: 20190513
  20. OMEPRAZOLE. [Concomitant]
     Active Substance: OMEPRAZOLE
     Indication: PROPHYLAXIS AGAINST GASTROINTESTINAL ULCER
     Dosage: 20 MILLIGRAM
     Route: 048
     Dates: start: 2018
  21. PARACETAMOL [Concomitant]
     Active Substance: ACETAMINOPHEN
     Route: 042
     Dates: start: 20190425, end: 20190425
  22. APREPITANT. [Concomitant]
     Active Substance: APREPITANT
     Indication: PREMEDICATION
     Route: 048
     Dates: start: 20190410, end: 20190520
  23. ABRAXANE [Suspect]
     Active Substance: PACLITAXEL
     Route: 041
     Dates: start: 20190404, end: 20190404
  24. ABRAXANE [Suspect]
     Active Substance: PACLITAXEL
     Route: 041
     Dates: start: 20190513, end: 20190513
  25. OLECLUMAB. [Suspect]
     Active Substance: OLECLUMAB
     Route: 041
     Dates: start: 20190513, end: 20190513
  26. GEMCITABINE. [Suspect]
     Active Substance: GEMCITABINE
     Route: 041
     Dates: start: 20190130, end: 20190130
  27. URBASON [Concomitant]
     Active Substance: METHYLPREDNISOLONE
     Dosage: 23 MILLIGRAM
     Route: 048
     Dates: start: 20190416
  28. ABRAXANE [Suspect]
     Active Substance: PACLITAXEL
     Indication: PANCREATIC CARCINOMA METASTATIC
     Route: 041
     Dates: start: 20190123, end: 20190123
  29. OLECLUMAB. [Suspect]
     Active Substance: OLECLUMAB
     Route: 041
     Dates: start: 20190404, end: 20190404
  30. GEMCITABINE. [Suspect]
     Active Substance: GEMCITABINE
     Indication: PANCREATIC CARCINOMA METASTATIC
     Route: 041
     Dates: start: 20190123, end: 20190123
  31. ABRAXANE [Suspect]
     Active Substance: PACLITAXEL
     Route: 041
     Dates: start: 20190130, end: 20190130
  32. ABRAXANE [Suspect]
     Active Substance: PACLITAXEL
     Route: 041
     Dates: start: 20190416, end: 20190416
  33. OLECLUMAB. [Suspect]
     Active Substance: OLECLUMAB
     Route: 041
     Dates: start: 20190319, end: 20190319
  34. GEMCITABINE. [Suspect]
     Active Substance: GEMCITABINE
     Route: 041
     Dates: start: 20190520, end: 20190520
  35. NAPROXEN SODIUM. [Concomitant]
     Active Substance: NAPROXEN SODIUM
     Indication: NAUSEA
     Route: 002
     Dates: start: 20190124
  36. PARACETAMOL [Concomitant]
     Active Substance: ACETAMINOPHEN
     Indication: PROPHYLAXIS
     Route: 048
     Dates: start: 20190123
  37. PARACETAMOL [Concomitant]
     Active Substance: ACETAMINOPHEN
     Route: 042
     Dates: start: 20190701, end: 20190702
  38. PRIMEPERAM [Concomitant]
     Indication: NAUSEA
     Route: 048
     Dates: start: 20190124
  39. GEMCITABINE. [Suspect]
     Active Substance: GEMCITABINE
     Route: 041
     Dates: start: 20190213, end: 20190213
  40. GEMCITABINE. [Suspect]
     Active Substance: GEMCITABINE
     Route: 041
     Dates: start: 20190404, end: 20190404

REACTIONS (1)
  - Biliary obstruction [Recovered/Resolved]

NARRATIVE: CASE EVENT DATE: 20190423
